FAERS Safety Report 7076445-0 (Version None)
Quarter: 2010Q4

REPORT INFORMATION
  Report Type: 
  Country: None (occurrence: None)
  Receive Date: 20101101
  Receipt Date: 20101018
  Transmission Date: 20110411
  Serious: Yes (Other)
  Sender: FDA-Public Use
  Company Number: CA-ELI_LILLY_AND_COMPANY-CA201010003809

PATIENT
  Sex: Male

DRUGS (3)
  1. ZYPREXA [Suspect]
     Indication: PSYCHOTIC DISORDER
     Dosage: 2.5 MG, UNKNOWN
     Route: 065
  2. CO SIMVASTATIN [Concomitant]
     Dosage: 10 MG, UNKNOWN
     Route: 065
  3. PERINDOPRIL ERBUMINE [Concomitant]
     Dosage: 2 MG, UNKNOWN
     Route: 065

REACTIONS (2)
  - DIABETES MELLITUS [None]
  - RETINAL VEIN OCCLUSION [None]
